FAERS Safety Report 17684930 (Version 3)
Quarter: 2020Q4

REPORT INFORMATION
  Report Type: Spontaneous
  Country: US (occurrence: US)
  Receive Date: 20200420
  Receipt Date: 20201223
  Transmission Date: 20210113
  Serious: Yes (Other)
  Sender: FDA-Public Use
  Company Number: US-GILEAD-2020-0459687

PATIENT
  Age: 35 Year
  Sex: Male

DRUGS (2)
  1. TRUVADA [Suspect]
     Active Substance: EMTRICITABINE\TENOFOVIR DISOPROXIL FUMARATE
     Indication: HIV INFECTION
     Dosage: UNK
     Route: 048
     Dates: start: 200507, end: 201010
  2. TRUVADA [Suspect]
     Active Substance: EMTRICITABINE\TENOFOVIR DISOPROXIL FUMARATE
     Dosage: UNK
     Route: 065
     Dates: start: 2001, end: 20101028

REACTIONS (17)
  - Femur fracture [Not Recovered/Not Resolved]
  - Economic problem [Unknown]
  - Acute kidney injury [Not Recovered/Not Resolved]
  - Anxiety [Unknown]
  - Fanconi syndrome acquired [Not Recovered/Not Resolved]
  - Renal failure [Not Recovered/Not Resolved]
  - Bone density decreased [Unknown]
  - Chronic kidney disease [Not Recovered/Not Resolved]
  - Osteoporosis [Not Recovered/Not Resolved]
  - Osteopenia [Not Recovered/Not Resolved]
  - Pain [Unknown]
  - Multiple fractures [Unknown]
  - Anhedonia [Unknown]
  - Osteonecrosis [Not Recovered/Not Resolved]
  - Renal tubular dysfunction [Not Recovered/Not Resolved]
  - Emotional distress [Unknown]
  - Bone loss [Unknown]

NARRATIVE: CASE EVENT DATE: 20050728
